FAERS Safety Report 6743664-X (Version None)
Quarter: 2010Q2

REPORT INFORMATION
  Report Type: 
  Country: None (occurrence: None)
  Receive Date: 20100527
  Receipt Date: 20100521
  Transmission Date: 20101027
  Serious: Yes (Hospitalization, Other)
  Sender: FDA-Public Use
  Company Number: US-RB-009814-10

PATIENT
  Age: 36 Year
  Sex: Female

DRUGS (1)
  1. SUBOXONE [Suspect]
     Indication: PAIN
     Dosage: 24 - 32 MG DAILY
     Route: 060
     Dates: start: 20100401, end: 20100513

REACTIONS (3)
  - PNEUMONIA [None]
  - PYREXIA [None]
  - RESPIRATORY ARREST [None]
